FAERS Safety Report 24734550 (Version 1)
Quarter: 2024Q4

REPORT INFORMATION
  Report Type: Spontaneous
  Country: US (occurrence: US)
  Receive Date: 20241214
  Receipt Date: 20241214
  Transmission Date: 20250114
  Serious: No
  Sender: CELLTRION
  Company Number: US-CELLTRION INC.-2024US026463

PATIENT

DRUGS (1)
  1. ZYMFENTRA [Suspect]
     Active Substance: INFLIXIMAB-DYYB
     Indication: Crohn^s disease
     Dosage: INJECT 120 MG SUBCUTANEOUSLY EVERY 2 WEEKS
     Route: 058
     Dates: start: 20241023

REACTIONS (7)
  - Injection site haemorrhage [Recovered/Resolved]
  - Injection site mass [Not Recovered/Not Resolved]
  - Device malfunction [Unknown]
  - Wrong technique in product usage process [Recovered/Resolved]
  - Accidental exposure to product [Not Recovered/Not Resolved]
  - Exposure via skin contact [Not Recovered/Not Resolved]
  - Incorrect dose administered [Not Recovered/Not Resolved]

NARRATIVE: CASE EVENT DATE: 20241023
